FAERS Safety Report 12911275 (Version 1)
Quarter: 2016Q4

REPORT INFORMATION
  Report Type: Spontaneous
  Country: FR (occurrence: FR)
  Receive Date: 20161104
  Receipt Date: 20161104
  Transmission Date: 20170207
  Serious: Yes (Hospitalization)
  Sender: FDA-Public Use
  Company Number: FR-PFIZER INC-2016500384

PATIENT
  Age: 18 Year
  Sex: Female

DRUGS (3)
  1. PARACETAMOL [Suspect]
     Active Substance: ACETAMINOPHEN
     Indication: DYSMENORRHOEA
     Dosage: UNK
     Route: 048
     Dates: start: 20160301, end: 20160301
  2. SPASFON /00934601/ [Suspect]
     Active Substance: PHLOROGLUCINOL
     Indication: DYSMENORRHOEA
     Dosage: UNK
     Route: 048
     Dates: start: 20160301, end: 20160301
  3. ADVIL [Suspect]
     Active Substance: IBUPROFEN
     Indication: DYSMENORRHOEA
     Dosage: UNK
     Route: 048
     Dates: start: 20160301, end: 20160301

REACTIONS (2)
  - Intentional product misuse [Unknown]
  - Somnolence [Recovered/Resolved]

NARRATIVE: CASE EVENT DATE: 20160301
